FAERS Safety Report 19670387 (Version 2)
Quarter: 2022Q4

REPORT INFORMATION
  Report Type: Report from Study
  Country: US (occurrence: US)
  Receive Date: 20210806
  Receipt Date: 20221011
  Transmission Date: 20230113
  Serious: Yes (Hospitalization)
  Sender: FDA-Public Use
  Company Number: US-SAOL THERAPEUTICS-2021SAO00192

PATIENT
  Age: 43 Year
  Sex: Female

DRUGS (4)
  1. LIORESAL [Suspect]
     Active Substance: BACLOFEN
     Dosage: 322.689 ?G, \DAY
     Route: 037
     Dates: end: 20210325
  2. LIORESAL [Suspect]
     Active Substance: BACLOFEN
     Dosage: ^WEANED DOWN^
     Dates: start: 20210325, end: 20210331
  3. GABLOFEN [Suspect]
     Active Substance: BACLOFEN
     Dosage: 270 ?G, \DAY
     Route: 037
     Dates: end: 20210325
  4. GABLOFEN [Suspect]
     Active Substance: BACLOFEN
     Dosage: ^WEANED DOWN^
     Dates: start: 20210325, end: 20210331

REACTIONS (1)
  - Implant site infection [Recovered/Resolved]

NARRATIVE: CASE EVENT DATE: 20210325
